FAERS Safety Report 13653369 (Version 1)
Quarter: 2017Q2

REPORT INFORMATION
  Report Type: Spontaneous
  Country: US (occurrence: US)
  Receive Date: 20170614
  Receipt Date: 20170614
  Transmission Date: 20170830
  Serious: No
  Sender: FDA-Public Use
  Company Number: US-ROCHE-1414964

PATIENT
  Sex: Female
  Weight: 74.46 kg

DRUGS (4)
  1. ZANTAC [Concomitant]
     Active Substance: RANITIDINE HYDROCHLORIDE
  2. XELODA [Suspect]
     Active Substance: CAPECITABINE
     Dosage: 7 DAYS ON 7 DAYS OFF
     Route: 048
  3. OXYCODONE HYDROCHLORIDE. [Concomitant]
     Active Substance: OXYCODONE HYDROCHLORIDE
  4. XELODA [Suspect]
     Active Substance: CAPECITABINE
     Indication: COLON CANCER
     Route: 048
     Dates: start: 20140307

REACTIONS (3)
  - Disease progression [Unknown]
  - Palmar-plantar erythrodysaesthesia syndrome [Unknown]
  - Erythema [Not Recovered/Not Resolved]
